FAERS Safety Report 10717220 (Version 3)
Quarter: 2015Q1

REPORT INFORMATION
  Report Type: Spontaneous
  Country: US (occurrence: US)
  Receive Date: 20150116
  Receipt Date: 20150216
  Transmission Date: 20150721
  Serious: No
  Sender: FDA-Public Use
  Company Number: US-PFIZER INC-2015018007

PATIENT
  Age: 63 Year
  Sex: Female
  Weight: 49 kg

DRUGS (15)
  1. SUTENT [Suspect]
     Active Substance: SUNITINIB MALATE
     Dosage: 37.5 MG, UNK
     Route: 048
     Dates: start: 20150108
  2. OMEPRAZOLE MAGNESIUM. [Concomitant]
     Active Substance: OMEPRAZOLE MAGNESIUM
     Dosage: 20.6 MG, AS NEEDED
     Route: 048
  3. PREDNISONE. [Concomitant]
     Active Substance: PREDNISONE
     Indication: AUTOIMMUNE HEPATITIS
     Dosage: 2.5 MG, 1X/DAY
     Route: 048
  4. CALCIUM [Concomitant]
     Active Substance: CALCIUM
     Indication: PROPHYLAXIS
     Dosage: 250 MG, 1X/DAY
     Route: 048
  5. SUTENT [Suspect]
     Active Substance: SUNITINIB MALATE
     Indication: GASTRIC CANCER
     Dosage: 50 MG, CYCLIC
     Route: 048
     Dates: start: 2014
  6. TYLENOL [Concomitant]
     Active Substance: ACETAMINOPHEN
     Indication: HEADACHE
     Dosage: 600 MG, AS NEEDED
  7. FOLIC ACID. [Concomitant]
     Active Substance: FOLIC ACID
     Indication: COLON CANCER
     Dosage: 800 MG, UNK
     Route: 048
  8. TUMS [Concomitant]
     Active Substance: CALCIUM CARBONATE
     Indication: DYSPEPSIA
     Dosage: 0.5 DF, AS NEEDED
     Route: 048
  9. ALDACTONE [Concomitant]
     Active Substance: SPIRONOLACTONE
     Indication: JOINT SWELLING
  10. VITAMIN D [Concomitant]
     Active Substance: CHOLECALCIFEROL
     Dosage: 2000 MG, 1X/DAY
     Route: 048
  11. ALDACTONE [Concomitant]
     Active Substance: SPIRONOLACTONE
     Indication: HYPERTENSION
     Dosage: 100 MG, 1X/DAY
     Route: 048
  12. POTASSIUM CHLORIDE. [Concomitant]
     Active Substance: POTASSIUM CHLORIDE
     Indication: HYPOKALAEMIA
     Dosage: 20 MEQ, DAILY
     Route: 048
  13. PROAIR HFA [Concomitant]
     Active Substance: ALBUTEROL SULFATE
     Dosage: 4 DF, AS NEEDED
     Route: 048
  14. CONSTULOSE [Concomitant]
     Active Substance: LACTULOSE
     Indication: CONSTIPATION
     Dosage: 4 TABLESPOONS AT BEDTIME
     Route: 048
  15. FISH OIL [Concomitant]
     Active Substance: FISH OIL
     Dosage: 2000 MG, 1X/DAY
     Route: 048

REACTIONS (13)
  - Glossodynia [Not Recovered/Not Resolved]
  - Weight decreased [Not Recovered/Not Resolved]
  - Skin exfoliation [Unknown]
  - Product use issue [Unknown]
  - Oral pain [Not Recovered/Not Resolved]
  - Burning sensation [Unknown]
  - Decreased appetite [Not Recovered/Not Resolved]
  - Rash macular [Not Recovered/Not Resolved]
  - Disease progression [Unknown]
  - Gastric cancer [Unknown]
  - Oropharyngeal pain [Not Recovered/Not Resolved]
  - Dyspepsia [Not Recovered/Not Resolved]
  - Drug intolerance [Unknown]

NARRATIVE: CASE EVENT DATE: 2014
